FAERS Safety Report 10173494 (Version 1)
Quarter: 2014Q2

REPORT INFORMATION
  Report Type: Spontaneous
  Country: US (occurrence: US)
  Receive Date: 20140515
  Receipt Date: 20140515
  Transmission Date: 20141212
  Serious: No
  Sender: FDA-Public Use
  Company Number: US-TEVA-478199USA

PATIENT
  Age: 77 Year
  Sex: Female
  Weight: 86.26 kg

DRUGS (6)
  1. PROAIR HFA [Suspect]
     Indication: DYSPNOEA
     Route: 055
  2. VERAPAMIL [Concomitant]
     Indication: LABILE BLOOD PRESSURE
  3. HYDROCHLOROTHIAZIDE [Concomitant]
     Indication: LABILE BLOOD PRESSURE
  4. ALLOPURINOL [Concomitant]
     Indication: HYPERURICAEMIA
  5. EYE DROPS [Concomitant]
     Indication: GLAUCOMA
  6. EYE DROPS [Concomitant]
     Indication: CATARACT

REACTIONS (3)
  - Glossodynia [Not Recovered/Not Resolved]
  - Glossodynia [Not Recovered/Not Resolved]
  - Tongue discolouration [Not Recovered/Not Resolved]
